FAERS Safety Report 9877909 (Version 4)
Quarter: 2014Q2

REPORT INFORMATION
  Report Type: Spontaneous
  Country: US (occurrence: US)
  Receive Date: 20140206
  Receipt Date: 20140515
  Transmission Date: 20141212
  Serious: Yes (Hospitalization)
  Sender: FDA-Public Use
  Company Number: US-BAYER-2014-018826

PATIENT
  Age: 22 Year
  Sex: Female
  Weight: 58.96 kg

DRUGS (5)
  1. MIRENA [Suspect]
     Indication: CONTRACEPTION
     Dosage: 20 MCG/24HR, CONT
     Route: 015
     Dates: start: 20090608, end: 20131224
  2. LEXAPRO [Concomitant]
     Indication: ANXIETY
  3. LEXAPRO [Concomitant]
     Indication: ANXIETY
  4. DEPO PROVERA [Concomitant]
  5. IBUPROFEN [Concomitant]

REACTIONS (5)
  - Uterine perforation [None]
  - Device breakage [None]
  - Injury [None]
  - Pain [None]
  - Emotional distress [None]
